FAERS Safety Report 17993339 (Version 1)
Quarter: 2020Q3

REPORT INFORMATION
  Report Type: Spontaneous
  Country: US (occurrence: US)
  Receive Date: 20200702
  Receipt Date: 20200702
  Transmission Date: 20201103
  Serious: Yes (Other)
  Sender: FDA-Public Use
  Company Number: None

PATIENT

DRUGS (2)
  1. SOUR WORMS 10 PIECE [CBD] [Suspect]
     Active Substance: CANNABIDIOL\HERBALS
  2. SUNMED VEGAN GUMMY BEARS WITH 5MG CBD [Suspect]
     Active Substance: CANNABIDIOL\HERBALS
     Route: 048
     Dates: start: 20200506, end: 20200527

REACTIONS (5)
  - Urticaria [None]
  - Insomnia [None]
  - Tinnitus [None]
  - Chest pain [None]
  - Hyperacusis [None]

NARRATIVE: CASE EVENT DATE: 20200519
